FAERS Safety Report 4719028-7 (Version None)
Quarter: 2005Q3

REPORT INFORMATION
  Report Type: 
  Country: None (occurrence: None)
  Receive Date: 20050719
  Receipt Date: 20050706
  Transmission Date: 20060218
  Serious: Yes (Disabling, Other)
  Sender: FDA-Public Use
  Company Number: 2005-02339

PATIENT
  Age: 34 Year
  Sex: Female

DRUGS (1)
  1. CHLOROQUINE PHOSPHATE [Suspect]
     Indication: MALARIA
     Dosage: SEE IMAGE

REACTIONS (1)
  - PSYCHIATRIC SYMPTOM [None]
